FAERS Safety Report 24397445 (Version 4)
Quarter: 2025Q2

REPORT INFORMATION
  Report Type: Report from Study
  Country: US (occurrence: US)
  Receive Date: 20241004
  Receipt Date: 20250623
  Transmission Date: 20250717
  Serious: No
  Sender: SUNOVION
  Company Number: US-SUMITOMO PHARMA SWITZERLAND GMBH-2024SPA000306

PATIENT

DRUGS (3)
  1. ORGOVYX [Suspect]
     Active Substance: RELUGOLIX
     Indication: Prostate cancer
     Route: 048
     Dates: start: 20240624, end: 20240624
  2. ORGOVYX [Suspect]
     Active Substance: RELUGOLIX
     Dosage: 120 MG, QD...TAKEN PRIOR TO BIOLOGICS
     Route: 048
     Dates: start: 20240625
  3. ORGOVYX [Suspect]
     Active Substance: RELUGOLIX
     Dosage: 120 MG, QD...STARTED WITH BIOLOGICS
     Route: 048
     Dates: start: 20240718

REACTIONS (10)
  - Feeling abnormal [Unknown]
  - Hepatic enzyme increased [Unknown]
  - Emotional disorder [Unknown]
  - Irritability [Unknown]
  - Anxiety [Unknown]
  - Night sweats [Unknown]
  - Weight increased [Unknown]
  - Hot flush [Unknown]
  - Hyperhidrosis [Unknown]
  - Asthenia [Unknown]
